FAERS Safety Report 5960429-7 (Version None)
Quarter: 2008Q4

REPORT INFORMATION
  Report Type: 
  Country: None (occurrence: None)
  Receive Date: 20081120
  Receipt Date: 20081113
  Transmission Date: 20090506
  Serious: Yes (Other)
  Sender: FDA-Public Use
  Company Number: US-ABBOTT-08R-163-0487618-00

PATIENT
  Sex: Female

DRUGS (1)
  1. ERYTHROMYCIN ETHYLSUCCINATE/SULFISOXAZOLE ACETYL [Suspect]
     Indication: DRUG USE FOR UNKNOWN INDICATION
     Dosage: NOT REPORTED

REACTIONS (4)
  - DEAFNESS [None]
  - DYSPEPSIA [None]
  - NERVE INJURY [None]
  - OESOPHAGEAL DISORDER [None]
